FAERS Safety Report 11589859 (Version 1)
Quarter: 2015Q4

REPORT INFORMATION
  Report Type: Spontaneous
  Country: FR (occurrence: FR)
  Receive Date: 20151002
  Receipt Date: 20151002
  Transmission Date: 20160304
  Serious: Yes (Hospitalization)
  Sender: FDA-Public Use
  Company Number: FR-ASTRAZENECA-2015SE94093

PATIENT
  Age: 12244 Day
  Sex: Male

DRUGS (6)
  1. ARIPIPRAZOLE. [Suspect]
     Active Substance: ARIPIPRAZOLE
     Route: 048
  2. FLUOXETINE [Concomitant]
     Active Substance: FLUOXETINE HYDROCHLORIDE
     Route: 048
     Dates: start: 20150903, end: 20150903
  3. XANAX [Concomitant]
     Active Substance: ALPRAZOLAM
     Route: 048
     Dates: start: 20150903, end: 20150903
  4. XEROQUEL [Suspect]
     Active Substance: QUETIAPINE FUMARATE
     Route: 048
  5. PAROXETINE [Concomitant]
     Active Substance: PAROXETINE\PAROXETINE HYDROCHLORIDE
     Route: 048
     Dates: start: 20150903, end: 20150903
  6. XEROQUEL [Suspect]
     Active Substance: QUETIAPINE FUMARATE
     Route: 048
     Dates: start: 20150903, end: 20150903

REACTIONS (9)
  - Intentional overdose [Unknown]
  - Hyperthermia [Recovered/Resolved]
  - Pneumonia aspiration [Unknown]
  - Sputum purulent [Unknown]
  - Seizure [Recovered/Resolved]
  - Depressed level of consciousness [Unknown]
  - Neuroleptic malignant syndrome [Recovered/Resolved]
  - Confusional state [Unknown]
  - Lung disorder [Unknown]

NARRATIVE: CASE EVENT DATE: 20150903
